FAERS Safety Report 16651673 (Version 1)
Quarter: 2019Q3

REPORT INFORMATION
  Report Type: Spontaneous
  Country: FR (occurrence: FR)
  Receive Date: 20190731
  Receipt Date: 20190731
  Transmission Date: 20191004
  Serious: Yes (Hospitalization, Other)
  Sender: FDA-Public Use
  Company Number: FR-JNJFOC-20190730438

PATIENT
  Age: 74 Year
  Sex: Female

DRUGS (8)
  1. OXYNORMORO [Suspect]
     Active Substance: OXYCODONE HYDROCHLORIDE
  2. BROMAZEPAM [Concomitant]
     Active Substance: BROMAZEPAM
  3. DAFALGAN [Concomitant]
     Active Substance: ACETAMINOPHEN
  4. RIVAROXABAN [Suspect]
     Active Substance: RIVAROXABAN
     Indication: PRODUCT USED FOR UNKNOWN INDICATION
     Route: 048
     Dates: end: 20190711
  5. UVEDOSE [Suspect]
     Active Substance: CHOLECALCIFEROL
  6. SOTALOL. [Concomitant]
     Active Substance: SOTALOL
  7. ESIDREX [Concomitant]
     Active Substance: HYDROCHLOROTHIAZIDE
  8. OROCAL [Concomitant]

REACTIONS (2)
  - Liver injury [Unknown]
  - Tibia fracture [Unknown]

NARRATIVE: CASE EVENT DATE: 201907
